FAERS Safety Report 8134724-X (Version None)
Quarter: 2012Q1

REPORT INFORMATION
  Report Type: 
  Country: None (occurrence: None)
  Receive Date: 20120214
  Receipt Date: 20120131
  Transmission Date: 20120608
  Serious: Yes (Death, Hospitalization)
  Sender: FDA-Public Use
  Company Number: DE-UCBSA-039383

PATIENT
  Age: 65 Year
  Sex: Female

DRUGS (6)
  1. PREDNISOLONE [Concomitant]
     Dates: start: 20100901
  2. FOLSAN [Concomitant]
     Dosage: EVERY FRIDAYS
  3. METHOTREXATE [Concomitant]
     Dates: start: 20040901, end: 20090501
  4. CERTOLIZUMAB PEGOL [Suspect]
     Indication: RHEUMATOID ARTHRITIS
     Dosage: 400 MG
     Route: 058
     Dates: start: 20100901, end: 20101001
  5. ARCOXIA [Concomitant]
     Dosage: 90 MG IF NECESSARY
  6. METHOTREXATE [Concomitant]
     Indication: RHEUMATOID ARTHRITIS
     Dates: start: 20090601, end: 20101001

REACTIONS (1)
  - LUNG ADENOCARCINOMA [None]
